FAERS Safety Report 24626621 (Version 2)
Quarter: 2024Q4

REPORT INFORMATION
  Report Type: Spontaneous
  Country: JP (occurrence: JP)
  Receive Date: 20241115
  Receipt Date: 20241119
  Transmission Date: 20250115
  Serious: No
  Sender: PFIZER
  Company Number: JP-PFIZER INC-202400302207

PATIENT

DRUGS (1)
  1. COMIRNATY (BRETOVAMERAN) [Suspect]
     Active Substance: BRETOVAMERAN
     Indication: COVID-19 immunisation
     Dosage: DOSE 1, SINGLE
     Dates: start: 20241105, end: 20241105

REACTIONS (1)
  - Device breakage [Unknown]

NARRATIVE: CASE EVENT DATE: 20241105
